FAERS Safety Report 22153363 (Version 1)
Quarter: 2023Q1

REPORT INFORMATION
  Report Type: Spontaneous
  Country: BG (occurrence: BG)
  Receive Date: 20230329
  Receipt Date: 20230329
  Transmission Date: 20230417
  Serious: Yes (Other)
  Sender: FDA-Public Use
  Company Number: BG-CELLTRION INC.-2023BG006297

PATIENT

DRUGS (6)
  1. RITUXIMAB [Suspect]
     Active Substance: RITUXIMAB
     Indication: Chronic lymphocytic leukaemia
     Dosage: RFC PROTOCOL, ON DAY 1 AT 375 MG/M2 FOR COURSE 1
     Route: 065
  2. RITUXIMAB [Suspect]
     Active Substance: RITUXIMAB
     Dosage: RFC PROTOCOL, 500 MG/M2 FOR COURSE 2-6
     Route: 065
  3. FLUDARABINE [Suspect]
     Active Substance: FLUDARABINE PHOSPHATE
     Indication: Chronic lymphocytic leukaemia
     Dosage: RFC PROTOCOL, 25 MG/M2 ON DAYS 1-3 FOR COURSES 2-6
     Route: 065
  4. FLUDARABINE [Suspect]
     Active Substance: FLUDARABINE PHOSPHATE
     Dosage: RFC PROTOCOL, 25 MG/M2 ON DAYS 1-3 FOR COURSES 2-6
     Route: 065
  5. CYCLOPHOSPHAMIDE [Suspect]
     Active Substance: CYCLOPHOSPHAMIDE
     Indication: Chronic lymphocytic leukaemia
     Dosage: RFC PROTOCOL, 250 MG/M2 ON DAYS 1-3 FOR COURSES 2-6
     Route: 065
  6. CYCLOPHOSPHAMIDE [Suspect]
     Active Substance: CYCLOPHOSPHAMIDE
     Dosage: RFC PROTOCOL, 250 MG/M2 ON DAYS 1-3 FOR COURSES 2-6
     Route: 065

REACTIONS (2)
  - Myelosuppression [Unknown]
  - Cytopenia [Unknown]
